FAERS Safety Report 7297721-2 (Version None)
Quarter: 2011Q1

REPORT INFORMATION
  Report Type: 
  Country: None (occurrence: None)
  Receive Date: 20110217
  Receipt Date: 20110208
  Transmission Date: 20110831
  Serious: Yes (Other)
  Sender: FDA-Public Use
  Company Number: GB-AMGEN-GBRCT2010006061

PATIENT
  Age: 73 Year
  Sex: Male
  Weight: 89 kg

DRUGS (1)
  1. ETANERCEPT [Suspect]
     Indication: RHEUMATOID ARTHRITIS
     Dosage: UNK
     Dates: start: 20050330, end: 20060809

REACTIONS (1)
  - LUNG CARCINOMA CELL TYPE UNSPECIFIED STAGE 0 [None]
